FAERS Safety Report 16211830 (Version 4)
Quarter: 2020Q4

REPORT INFORMATION
  Report Type: Spontaneous
  Country: CA (occurrence: CA)
  Receive Date: 20190418
  Receipt Date: 20201120
  Transmission Date: 20210113
  Serious: Yes (Life-Threatening, Hospitalization, Other)
  Sender: FDA-Public Use
  Company Number: CA-AUROBINDO-AUR-APL-2019-020074

PATIENT
  Age: 18 Year
  Sex: Female

DRUGS (4)
  1. PAROXETINE TABLET [Suspect]
     Active Substance: PAROXETINE
     Indication: DEPRESSION
     Dosage: 20 MILLIGRAM, ONCE A DAY
     Route: 048
  2. ACETAMINOPHEN;CODEINE [Concomitant]
     Active Substance: ACETAMINOPHEN\CODEINE PHOSPHATE
     Indication: MIGRAINE
     Dosage: UNK
     Route: 048
  3. APTIOM [Suspect]
     Active Substance: ESLICARBAZEPINE ACETATE
     Indication: PRODUCT USED FOR UNKNOWN INDICATION
     Dosage: 5600 MILLIGRAM
     Route: 048
  4. ACETAMINOPHEN;CODEINE [Concomitant]
     Active Substance: ACETAMINOPHEN\CODEINE PHOSPHATE
     Dosage: UNK
     Route: 065

REACTIONS (27)
  - Confusional state [Recovered/Resolved]
  - Restlessness [Recovering/Resolving]
  - Sinus tachycardia [Recovering/Resolving]
  - Generalised tonic-clonic seizure [Recovered/Resolved]
  - Apnoea [Not Recovered/Not Resolved]
  - Posturing [Recovered/Resolved]
  - Blood pressure abnormal [Recovering/Resolving]
  - Hypotonia [Recovered/Resolved]
  - Altered state of consciousness [Recovered/Resolved]
  - Clonus [Recovering/Resolving]
  - Muscle rigidity [Recovered/Resolved]
  - Cardiac arrest [Recovered/Resolved]
  - Pulse absent [Not Recovered/Not Resolved]
  - Chills [Recovered/Resolved]
  - Serotonin syndrome [Recovered/Resolved]
  - Intentional overdose [Recovered/Resolved]
  - Depressed level of consciousness [Recovered/Resolved]
  - Tachycardia [Recovered/Resolved]
  - Mydriasis [Recovered/Resolved]
  - Hyperglycaemia [Recovered/Resolved]
  - Hypoxia [Recovered/Resolved]
  - Electrocardiogram QT prolonged [Not Recovered/Not Resolved]
  - Migraine [Not Recovered/Not Resolved]
  - Hypertonia [Recovering/Resolving]
  - Dysarthria [Recovering/Resolving]
  - Hyperreflexia [Recovering/Resolving]
  - Ventricular tachycardia [Recovered/Resolved]
